FAERS Safety Report 5763736-6 (Version None)
Quarter: 2008Q2

REPORT INFORMATION
  Report Type: 
  Country: None (occurrence: None)
  Receive Date: 20080610
  Receipt Date: 20080606
  Transmission Date: 20081010
  Serious: Yes (Hospitalization)
  Sender: FDA-Public Use
  Company Number: FR-BRISTOL-MYERS SQUIBB COMPANY-14156699

PATIENT
  Age: 52 Year
  Sex: Female
  Weight: 69 kg

DRUGS (4)
  1. ORENCIA [Suspect]
     Indication: RHEUMATOID ARTHRITIS
     Route: 042
     Dates: start: 20050706
  2. METHOTREXATE [Concomitant]
  3. CORTANCYL [Concomitant]
  4. FOLIC ACID [Concomitant]

REACTIONS (4)
  - AMNESIA [None]
  - DEPRESSION [None]
  - PERSONALITY DISORDER [None]
  - SUICIDAL IDEATION [None]
